FAERS Safety Report 7291227-2 (Version None)
Quarter: 2011Q1

REPORT INFORMATION
  Report Type: 
  Country: None (occurrence: None)
  Receive Date: 20110214
  Receipt Date: 20110203
  Transmission Date: 20110831
  Serious: Yes (Hospitalization, Other)
  Sender: FDA-Public Use
  Company Number: US-JNJFOC-20101001066

PATIENT
  Sex: Male
  Weight: 122.47 kg

DRUGS (13)
  1. SLOW FE [Concomitant]
  2. NASACORT [Concomitant]
  3. MAALOX [Concomitant]
  4. FOLIC ACID [Concomitant]
  5. SUPER B COMPLEX [Concomitant]
  6. CALTRATE [Concomitant]
  7. CENTRUM MULTIVITAMINS [Concomitant]
  8. TYLENOL [Concomitant]
  9. METHOTREXATE [Concomitant]
  10. REMICADE [Suspect]
     Indication: RHEUMATOID ARTHRITIS
     Route: 042
  11. GABAPENTIN [Concomitant]
  12. HYDROXYCHLOROQUINE SULFATE [Concomitant]
  13. ASTELIN [Concomitant]

REACTIONS (6)
  - HERNIA [None]
  - INTESTINAL PERFORATION [None]
  - NUCLEAR MAGNETIC RESONANCE IMAGING ABNORMAL [None]
  - ABDOMINOPLASTY [None]
  - SURGERY [None]
  - BLOOD IRON DECREASED [None]
